FAERS Safety Report 11074474 (Version 1)
Quarter: 2015Q2

REPORT INFORMATION
  Report Type: Spontaneous
  Country: US (occurrence: None)
  Receive Date: 20150428
  Receipt Date: 20150428
  Transmission Date: 20150821
  Serious: No
  Sender: FDA-Public Use
  Company Number: None

PATIENT
  Age: 57 Year
  Sex: Female

DRUGS (1)
  1. COPAXONE [Suspect]
     Active Substance: GLATIRAMER ACETATE
     Indication: MULTIPLE SCLEROSIS
     Dosage: 3 TIMES WEEKLY SUBCUTANEOUS 057  INJECTABLE
     Route: 058
     Dates: start: 20140902

REACTIONS (5)
  - Throat tightness [None]
  - Swollen tongue [None]
  - Chest pain [None]
  - Injection site swelling [None]
  - Urticaria [None]

NARRATIVE: CASE EVENT DATE: 20150420
